FAERS Safety Report 21223790 (Version 1)
Quarter: 2022Q3

REPORT INFORMATION
  Report Type: Spontaneous
  Country: CN (occurrence: CN)
  Receive Date: 20220817
  Receipt Date: 20220817
  Transmission Date: 20221027
  Serious: Yes (Other)
  Sender: FDA-Public Use
  Company Number: CN-PFIZER INC-PV202200042843

PATIENT
  Age: 22 Year
  Sex: Female
  Weight: 66 kg

DRUGS (2)
  1. LINEZOLID [Suspect]
     Active Substance: LINEZOLID
     Indication: Atypical mycobacterial infection
     Dosage: 0.6 G, 1X/DAY
     Route: 048
     Dates: start: 20220810, end: 20220810
  2. AMIKACIN SULFATE [Concomitant]
     Active Substance: AMIKACIN SULFATE
     Indication: Atypical mycobacterial infection
     Dosage: 0.4 G, 1X/DAY
     Route: 041
     Dates: start: 20220727, end: 20220810

REACTIONS (5)
  - Pyrexia [Recovering/Resolving]
  - Rash erythematous [Recovering/Resolving]
  - Pruritus [Recovering/Resolving]
  - Hypersensitivity [Recovering/Resolving]
  - Off label use [Unknown]

NARRATIVE: CASE EVENT DATE: 20220810
